FAERS Safety Report 8786882 (Version 3)
Quarter: 2012Q4

REPORT INFORMATION
  Report Type: 
  Country: US (occurrence: US)
  Receive Date: 20120914
  Receipt Date: 20121112
  Transmission Date: 20130627
  Serious: Yes (Life-Threatening, Hospitalization)
  Sender: FDA-Public Use
  Company Number: US-009507513-1209USA005070

PATIENT
  Age: 69 Year
  Sex: Male
  Weight: 61.4 kg

DRUGS (4)
  1. VORINOSTAT [Suspect]
     Indication: GLIOBLASTOMA MULTIFORME
     Dosage: 300 mg, on days 1-5, weekly
     Route: 048
     Dates: start: 20120730, end: 20120904
  2. TEMOZOLOMIDE [Suspect]
     Indication: GLIOBLASTOMA MULTIFORME
     Dosage: 75 mg/m2, qd
     Route: 048
     Dates: start: 20120730, end: 20120904
  3. DEXAMETHASONE [Suspect]
  4. DAPSONE [Suspect]

REACTIONS (7)
  - Platelet count decreased [Recovering/Resolving]
  - Muscular weakness [Recovering/Resolving]
  - Decreased appetite [Recovering/Resolving]
  - Dehydration [Recovering/Resolving]
  - Diarrhoea [Recovering/Resolving]
  - Anaemia [Recovering/Resolving]
  - Hydrocephalus [Recovering/Resolving]
